FAERS Safety Report 18725127 (Version 1)
Quarter: 2021Q1

REPORT INFORMATION
  Report Type: Spontaneous
  Country: US (occurrence: US)
  Receive Date: 20210111
  Receipt Date: 20210111
  Transmission Date: 20210419
  Serious: Yes (Other)
  Sender: FDA-Public Use
  Company Number: None

PATIENT
  Age: 64 Year
  Sex: Female
  Weight: 41.4 kg

DRUGS (4)
  1. ARNICARE [Suspect]
     Active Substance: HOMEOPATHICS
     Indication: MUSCLE STRAIN
     Dosage: ?          QUANTITY:1 2.6 OZ;OTHER ROUTE:APPLIED EXTERIOR SKIN?
     Route: 061
     Dates: start: 20201217, end: 20201218
  2. VITAMIN C [Concomitant]
     Active Substance: ASCORBIC ACID
  3. VIT. D [Concomitant]
     Active Substance: VITAMIN D NOS
  4. VITAMIN B?COMPLEX [Concomitant]
     Active Substance: DEXPANTHENOL\NIACINAMIDE\PYRIDOXINE HYDROCHLORIDE\RIBOFLAVIN 5^-PHOSPHATE SODIUM\THIAMINE HYDROCHLORIDE

REACTIONS (12)
  - Dyspnoea [None]
  - Muscle spasms [None]
  - Insomnia [None]
  - Paraesthesia [None]
  - Rash [None]
  - Pain [None]
  - Malaise [None]
  - Blister [None]
  - Vision blurred [None]
  - Burning sensation [None]
  - Decreased appetite [None]
  - Delirium [None]

NARRATIVE: CASE EVENT DATE: 20201220
